FAERS Safety Report 22948563 (Version 3)
Quarter: 2023Q4

REPORT INFORMATION
  Report Type: Report from Study
  Country: US (occurrence: US)
  Receive Date: 20230915
  Receipt Date: 20231023
  Transmission Date: 20240110
  Serious: No
  Sender: FDA-Public Use
  Company Number: US-002147023-NVSC2023US200256

PATIENT
  Sex: Female

DRUGS (1)
  1. KISQALI [Suspect]
     Active Substance: RIBOCICLIB
     Indication: Breast cancer
     Dosage: 600 MG, TID
     Route: 048
     Dates: start: 20230823

REACTIONS (6)
  - White blood cell count decreased [Unknown]
  - Urinary tract infection [Unknown]
  - Vulvovaginal discomfort [Unknown]
  - Alopecia [Unknown]
  - Pruritus [Unknown]
  - Inappropriate schedule of product administration [Unknown]
